FAERS Safety Report 5538129-7 (Version None)
Quarter: 2007Q4

REPORT INFORMATION
  Report Type: 
  Country: None (occurrence: None)
  Receive Date: 20071207
  Receipt Date: 20071128
  Transmission Date: 20080405
  Serious: Yes (Hospitalization)
  Sender: FDA-Public Use
  Company Number: BE-ABBOTT-06P-013-0352025-00

PATIENT

DRUGS (5)
  1. HUMIRA [Suspect]
     Indication: RHEUMATOID ARTHRITIS
     Dosage: NOT REPORTED
     Dates: start: 20040401
  2. METHYLPREDNISOLONE [Concomitant]
     Indication: RHEUMATOID ARTHRITIS
  3. FELODIPINE [Concomitant]
     Indication: RHEUMATOID ARTHRITIS
  4. DEXTROPROPOXYPHENE HYDROCHLORIDE [Concomitant]
     Indication: RHEUMATOID ARTHRITIS
  5. CLINDAMYCIN HYDROCHLORIDE [Concomitant]
     Indication: DRUG USE FOR UNKNOWN INDICATION
     Dates: start: 20060324, end: 20060424

REACTIONS (1)
  - BURSITIS [None]
